FAERS Safety Report 6136448-7 (Version None)
Quarter: 2009Q1

REPORT INFORMATION
  Report Type: 
  Country: None (occurrence: None)
  Receive Date: 20090325
  Receipt Date: 20090308
  Transmission Date: 20090719
  Serious: Yes (Other)
  Sender: FDA-Public Use
  Company Number: 2005S1001538

PATIENT
  Age: 65 Year
  Sex: Female
  Weight: 64.4108 kg

DRUGS (6)
  1. PHOSPHOSODA GINGER LEMON [Suspect]
     Indication: COLONOSCOPY
     Dosage: 90 ML; TOTAL; PO
     Route: 048
     Dates: start: 20040826, end: 20040826
  2. ZETIA [Concomitant]
  3. ESTRADIOL [Concomitant]
  4. ASPIRIN [Concomitant]
  5. ALEVE [Concomitant]
  6. DULCOLAX /00064401/ [Concomitant]

REACTIONS (7)
  - ACTIVITIES OF DAILY LIVING IMPAIRED [None]
  - ANHEDONIA [None]
  - INJURY [None]
  - MEDICATION ERROR [None]
  - RENAL FAILURE ACUTE [None]
  - RENAL FAILURE CHRONIC [None]
  - RENAL TRANSPLANT [None]
